FAERS Safety Report 7128342-X (Version None)
Quarter: 2010Q4

REPORT INFORMATION
  Report Type: 
  Country: None (occurrence: None)
  Receive Date: 20101130
  Receipt Date: 20101122
  Transmission Date: 20110411
  Serious: Yes (Other)
  Sender: FDA-Public Use
  Company Number: JP-ASTRAZENECA-2010SE55472

PATIENT
  Age: 60 Year
  Sex: Female

DRUGS (6)
  1. IRESSA [Suspect]
     Indication: ADENOCARCINOMA
     Dosage: DAILY
     Route: 048
  2. IRESSA [Suspect]
     Dosage: ONCE EVERY THREE DAYS
     Route: 048
  3. CISPLATIN [Concomitant]
     Indication: ADENOCARCINOMA
     Dosage: IN COMBINATION WITH GEMCITABINE
  4. GEMCITABINE [Concomitant]
     Indication: ADENOCARCINOMA
     Dosage: IN COMBINATION WITH CISPLATIN
  5. DOCETAXEL [Concomitant]
     Indication: ADENOCARCINOMA
  6. RADIATION THERAPY [Concomitant]
     Indication: METASTASES TO CENTRAL NERVOUS SYSTEM

REACTIONS (1)
  - GASTROINTESTINAL DISORDER [None]
